FAERS Safety Report 14378148 (Version 13)
Quarter: 2020Q1

REPORT INFORMATION
  Report Type: Spontaneous
  Country: US (occurrence: US)
  Receive Date: 20180111
  Receipt Date: 20200103
  Transmission Date: 20200409
  Serious: No
  Sender: FDA-Public Use
  Company Number: US-PFIZER INC-2018009722

PATIENT
  Age: 74 Year
  Sex: Female
  Weight: 107.48 kg

DRUGS (6)
  1. IBRANCE [Suspect]
     Active Substance: PALBOCICLIB
     Dosage: 125 MG, CYCLIC (3 WEEKS ON AND 1 WEEK OFF)
     Route: 048
  2. LETROZOLE. [Suspect]
     Active Substance: LETROZOLE
     Indication: BREAST CANCER METASTATIC
     Dosage: UNK
  3. IBRANCE [Suspect]
     Active Substance: PALBOCICLIB
     Indication: BREAST CANCER FEMALE
     Dosage: 125 MG, 1X/DAY
     Route: 048
     Dates: start: 201712, end: 201712
  4. CALTRATE [CALCIUM CARBONATE;COLECALCIFEROL] [Concomitant]
     Dosage: UNK
  5. IBRANCE [Suspect]
     Active Substance: PALBOCICLIB
     Dosage: 125 MG, DAILY
     Route: 048
  6. TYLENOL EXTRA STRENGTH [Concomitant]
     Active Substance: ACETAMINOPHEN
     Indication: PAIN
     Dosage: 1 DF, UNK [ONE TABLET]

REACTIONS (23)
  - Malaise [Unknown]
  - Blood pressure increased [Unknown]
  - Rash [Unknown]
  - Dandruff [Unknown]
  - Influenza [Unknown]
  - Nerve compression [Unknown]
  - Urticaria [Unknown]
  - Blood glucose increased [Recovering/Resolving]
  - Bone pain [Unknown]
  - Headache [Unknown]
  - Muscle strain [Unknown]
  - Seasonal allergy [Unknown]
  - Dry skin [Unknown]
  - Psoriasis [Unknown]
  - Diarrhoea [Recovering/Resolving]
  - Cystitis [Recovering/Resolving]
  - Nasopharyngitis [Unknown]
  - Hypokinesia [Unknown]
  - Weight increased [Unknown]
  - Hypersensitivity [Unknown]
  - Laryngitis [Unknown]
  - Alopecia [Unknown]
  - Nausea [Unknown]

NARRATIVE: CASE EVENT DATE: 201712
